FAERS Safety Report 4905991-8 (Version None)
Quarter: 2006Q1

REPORT INFORMATION
  Report Type: 
  Country: None (occurrence: None)
  Receive Date: 20060206
  Receipt Date: 20060124
  Transmission Date: 20060701
  Serious: Yes (Other)
  Sender: FDA-Public Use
  Company Number: 2006011705

PATIENT
  Age: 42 Year
  Sex: Male
  Weight: 86.1834 kg

DRUGS (1)
  1. VIAGRA [Suspect]
     Indication: ILL-DEFINED DISORDER
     Dosage: 100 MG (100 MG)

REACTIONS (6)
  - BLINDNESS TRANSIENT [None]
  - DRUG INEFFECTIVE [None]
  - OPTIC NERVE CUP/DISC RATIO DECREASED [None]
  - OPTIC NERVE DISORDER [None]
  - PHOTOPSIA [None]
  - SELF-MEDICATION [None]
